FAERS Safety Report 8577302-0 (Version None)
Quarter: 2012Q3

REPORT INFORMATION
  Report Type: 
  Country: None (occurrence: None)
  Receive Date: 20120807
  Receipt Date: 20120729
  Transmission Date: 20120928
  Serious: Yes (Other)
  Sender: FDA-Public Use
  Company Number: BE-BAUSCH-BL-2012-000329

PATIENT
  Age: 56 Year
  Sex: Male

DRUGS (3)
  1. DICLOFENAC [Suspect]
     Indication: PAIN IN EXTREMITY
     Dosage: 100 MG TWICE DAILY
     Dates: start: 20110501
  2. PRAVASTATIN [Concomitant]
     Indication: DYSLIPIDAEMIA
  3. LOSARTAN [Concomitant]
     Indication: HYPERTENSION

REACTIONS (2)
  - HAEMOPTYSIS [None]
  - PULMONARY OEDEMA [None]
